FAERS Safety Report 6745514-4 (Version None)
Quarter: 2010Q2

REPORT INFORMATION
  Report Type: 
  Country: None (occurrence: None)
  Receive Date: 20100526
  Receipt Date: 20100526
  Transmission Date: 20101027
  Serious: Yes (Life-Threatening)
  Sender: FDA-Public Use
  Company Number: None

PATIENT
  Age: 61 Year
  Sex: Male
  Weight: 84.1 kg

DRUGS (1)
  1. LISINOPRIL AND HYDROCHLOROTHIAZIDE [Suspect]
     Indication: HYPERTENSION
     Dosage: 1 TABLET DAILY ORAL 047
     Route: 048
     Dates: start: 20100507, end: 20100512

REACTIONS (4)
  - DRUG HYPERSENSITIVITY [None]
  - DYSPHAGIA [None]
  - LOCAL SWELLING [None]
  - SWOLLEN TONGUE [None]
